FAERS Safety Report 8603424-1 (Version None)
Quarter: 2012Q3

REPORT INFORMATION
  Report Type: 
  Country: None (occurrence: None)
  Receive Date: 20120817
  Receipt Date: 20120814
  Transmission Date: 20120928
  Serious: No
  Sender: FDA-Public Use
  Company Number: US-PFIZER INC-2012199484

PATIENT
  Sex: Female

DRUGS (2)
  1. LYRICA [Suspect]
     Dosage: UNKNOWN
  2. NEURONTIN [Suspect]
     Dosage: UNKNOWN

REACTIONS (2)
  - HEADACHE [None]
  - PAIN [None]
